FAERS Safety Report 7720429-3 (Version None)
Quarter: 2011Q3

REPORT INFORMATION
  Report Type: 
  Country: None (occurrence: None)
  Receive Date: 20110825
  Receipt Date: 20110809
  Transmission Date: 20111222
  Serious: Yes (Other)
  Sender: FDA-Public Use
  Company Number: THQ2011A04751

PATIENT
  Sex: Male

DRUGS (4)
  1. ACTOS [Suspect]
     Indication: TYPE 2 DIABETES MELLITUS
     Dosage: 30 MG (1 D),PER ORAL,  15 MG (1 D), PER ORAL, PER ORAL
     Route: 048
     Dates: end: 20110126
  2. ACTOS [Suspect]
     Indication: TYPE 2 DIABETES MELLITUS
     Dosage: 30 MG (1 D),PER ORAL,  15 MG (1 D), PER ORAL, PER ORAL
     Route: 048
     Dates: start: 20090319, end: 20100820
  3. ACTOS [Suspect]
     Indication: TYPE 2 DIABETES MELLITUS
     Dosage: 30 MG (1 D),PER ORAL,  15 MG (1 D), PER ORAL, PER ORAL
     Route: 048
     Dates: start: 20080820
  4. METFORMIN HCL [Concomitant]

REACTIONS (2)
  - BLADDER TRANSITIONAL CELL CARCINOMA STAGE I [None]
  - NEOPLASM RECURRENCE [None]
